FAERS Safety Report 15516801 (Version 2)
Quarter: 2018Q4

REPORT INFORMATION
  Report Type: Spontaneous
  Country: US (occurrence: US)
  Receive Date: 20181017
  Receipt Date: 20181018
  Transmission Date: 20190205
  Serious: No
  Sender: FDA-Public Use
  Company Number: US-AMGEN-USASP2018119521

PATIENT
  Age: 78 Year
  Sex: Female

DRUGS (16)
  1. TRIAMTERENE AND HYDROCHLOROTHIAZID [Concomitant]
     Active Substance: HYDROCHLOROTHIAZIDE\TRIAMTERENE
     Dosage: 37.5 MG, AS NECESSARY WITH HCTZ 20MG
  2. VISION ESSENTIALS GOLD [Concomitant]
  3. IRBESARTAN/HCTZ GA [Concomitant]
     Dosage: 330/12.5
  4. NITROSTAT [Concomitant]
     Active Substance: NITROGLYCERIN
     Dosage: 4 MG, AS NECESSARY
  5. ALLOPURINOL. [Concomitant]
     Active Substance: ALLOPURINOL
     Dosage: 300 MG, UNK
  6. ASPIRIN. [Concomitant]
     Active Substance: ASPIRIN
     Dosage: 81 MG, UNK
  7. REPATHA [Suspect]
     Active Substance: EVOLOCUMAB
     Indication: BLOOD CHOLESTEROL INCREASED
     Dosage: 140 MG, Q2WK
     Route: 065
     Dates: start: 2016
  8. MELATONIN [Concomitant]
     Active Substance: MELATONIN
     Dosage: 6-10 MG, UNK
  9. FLU VACCINE VII [Concomitant]
     Active Substance: INFLUENZA VIRUS VACCINE
     Dosage: UNK
     Dates: start: 20170927
  10. BENADRYL [Concomitant]
     Active Substance: DIPHENHYDRAMINE HYDROCHLORIDE
     Dosage: 25-50 MG, QD
  11. BIOS LIFE 2 NATURAL [Concomitant]
  12. CHROMIUM [Concomitant]
     Active Substance: CHROMIC CHLORIDE\CHROMIUM
     Dosage: UNK UNK, QD
  13. CELECOXIB. [Concomitant]
     Active Substance: CELECOXIB
     Dosage: 100 MG, UNK
  14. PENTOXIFYLLINE. [Concomitant]
     Active Substance: PENTOXIFYLLINE
     Dosage: 400 MG, UNK
  15. COENZYME Q10 [Concomitant]
     Active Substance: UBIDECARENONE
     Dosage: 100 MG, UNK
  16. ATENOLOL. [Concomitant]
     Active Substance: ATENOLOL
     Dosage: 50 MG, UNK

REACTIONS (3)
  - Injection site bruising [Recovered/Resolved]
  - Injection site pain [Recovered/Resolved]
  - Micrographic skin surgery [Unknown]

NARRATIVE: CASE EVENT DATE: 20180228
